FAERS Safety Report 11725751 (Version 13)
Quarter: 2019Q4

REPORT INFORMATION
  Report Type: Report from Study
  Country: BR (occurrence: BR)
  Receive Date: 20151111
  Receipt Date: 20191208
  Transmission Date: 20200122
  Serious: Yes (Life-Threatening, Hospitalization, Other)
  Sender: FDA-Public Use
  Company Number: PHHY2015BR146545

PATIENT
  Age: 67 Year
  Sex: Female
  Weight: 61.3 kg

DRUGS (9)
  1. RIVOTRIL [Concomitant]
     Active Substance: CLONAZEPAM
     Indication: PRODUCT USED FOR UNKNOWN INDICATION
     Dosage: 1 DF, QD (AT NIGHT)
     Route: 048
     Dates: start: 2007
  2. OMEPRAZOLE. [Concomitant]
     Active Substance: OMEPRAZOLE
     Indication: GASTRIC DISORDER
     Dosage: 1 DF, BID
     Route: 048
     Dates: start: 20150717
  3. ALENIA [Concomitant]
     Indication: ASTHMA
     Dosage: 1 PUFF Q12H
     Route: 055
  4. CONCOR [Concomitant]
     Active Substance: BISOPROLOL FUMARATE
     Indication: CARDIAC DISORDER
     Dosage: UNK
     Route: 065
  5. GILENYA [Suspect]
     Active Substance: FINGOLIMOD HYDROCHLORIDE
     Indication: MULTIPLE SCLEROSIS
     Dosage: 0.5 MG, QD
     Route: 048
     Dates: start: 201507, end: 20151109
  6. ACLASTA [Concomitant]
     Active Substance: ZOLEDRONIC ACID
     Indication: PRODUCT USED FOR UNKNOWN INDICATION
     Dosage: UNK (STARTED ONE YEAR AGO)
     Route: 065
  7. INSULIN [Concomitant]
     Active Substance: INSULIN NOS
     Indication: DIABETES MELLITUS
     Dosage: UNK
     Route: 065
  8. PREDNISONE. [Suspect]
     Active Substance: PREDNISONE
     Indication: PNEUMONIA
     Dosage: 20 MG, UNK
     Route: 065
  9. SPIRONOLACTONE. [Concomitant]
     Active Substance: SPIRONOLACTONE
     Indication: TACHYCARDIA
     Dosage: 1 DF, QD
     Route: 048

REACTIONS (51)
  - Somnolence [Recovering/Resolving]
  - Eye pain [Recovered/Resolved]
  - Hypertension [Recovered/Resolved]
  - Respiratory muscle weakness [Recovering/Resolving]
  - Gait disturbance [Unknown]
  - Dizziness [Unknown]
  - Nervousness [Unknown]
  - Dyspnoea [Recovering/Resolving]
  - Memory impairment [Unknown]
  - Concomitant disease aggravated [Recovering/Resolving]
  - Urinary tract infection [Unknown]
  - Respiratory fatigue [Not Recovered/Not Resolved]
  - Pulmonary fibrosis [Unknown]
  - Muscular weakness [Unknown]
  - Nail discolouration [Recovered/Resolved]
  - Feeling hot [Unknown]
  - Cardiac disorder [Unknown]
  - Cardiac failure [Recovering/Resolving]
  - Cardiomyopathy [Unknown]
  - Psychiatric symptom [Unknown]
  - Gastrooesophageal reflux disease [Not Recovered/Not Resolved]
  - Headache [Recovering/Resolving]
  - Tachycardia [Recovered/Resolved]
  - Lip discolouration [Recovered/Resolved]
  - Cardiomegaly [Recovering/Resolving]
  - Bladder hypertrophy [Unknown]
  - Weight decreased [Recovering/Resolving]
  - Lung disorder [Not Recovered/Not Resolved]
  - Feeling abnormal [Recovered/Resolved]
  - Palpitations [Unknown]
  - Malaise [Recovered/Resolved]
  - Fatigue [Not Recovered/Not Resolved]
  - Body temperature decreased [Recovered/Resolved]
  - Fall [Unknown]
  - Urinary tract disorder [Unknown]
  - Feeling cold [Recovered/Resolved]
  - Hyperhidrosis [Recovered/Resolved]
  - Respiratory tract inflammation [Unknown]
  - Cholelithiasis [Unknown]
  - Chest pain [Unknown]
  - Weight increased [Unknown]
  - Bladder disorder [Unknown]
  - Eye disorder [Unknown]
  - Pneumonia [Recovered/Resolved]
  - Pancreatitis [Unknown]
  - Pallor [Recovered/Resolved]
  - Eye swelling [Recovered/Resolved]
  - Tremor [Recovering/Resolving]
  - Asthma [Unknown]
  - Condition aggravated [Unknown]
  - Decreased appetite [Unknown]

NARRATIVE: CASE EVENT DATE: 2015
